FAERS Safety Report 4807352-9 (Version None)
Quarter: 2005Q4

REPORT INFORMATION
  Report Type: 
  Country: None (occurrence: None)
  Receive Date: 20051020
  Receipt Date: 20051020
  Transmission Date: 20060501
  Serious: Yes (Hospitalization)
  Sender: FDA-Public Use
  Company Number: None

PATIENT
  Age: 51 Year
  Sex: Male
  Weight: 86.1834 kg

DRUGS (1)
  1. PEG INTERFERON ALPHA-2A [Suspect]
     Indication: HEPATITIS C
     Dosage: 180MCG WEEKLY
     Dates: start: 20050419, end: 20050525

REACTIONS (2)
  - CONDITION AGGRAVATED [None]
  - DEPRESSION [None]
